FAERS Safety Report 6273550-3 (Version None)
Quarter: 2009Q3

REPORT INFORMATION
  Report Type: 
  Country: None (occurrence: None)
  Receive Date: 20090715
  Receipt Date: 20090701
  Transmission Date: 20100115
  Serious: Yes (Other)
  Sender: FDA-Public Use
  Company Number: 1-19095382

PATIENT
  Age: 79 Year
  Sex: Female

DRUGS (5)
  1. FENTANYL        (FORMULATION UNSPECIFIED) [Suspect]
     Indication: GASTRIC OPERATION
  2. ATRACURIUM [Suspect]
     Indication: GASTRIC OPERATION
  3. MIDAZOLAM HCL [Suspect]
     Indication: GASTRIC OPERATION
  4. PROPOFOL [Suspect]
     Indication: GASTRIC OPERATION
  5. NEOSTIGMINE [Suspect]
     Indication: GASTRIC OPERATION

REACTIONS (1)
  - DYSTONIA [None]
